FAERS Safety Report 9441030 (Version 1)
Quarter: 2013Q3

REPORT INFORMATION
  Report Type: Spontaneous
  Country: US (occurrence: US)
  Receive Date: 20130805
  Receipt Date: 20130805
  Transmission Date: 20140515
  Serious: Yes (Other)
  Sender: FDA-Public Use
  Company Number: CHPA2013US012230

PATIENT
  Age: 12 Year
  Sex: Male

DRUGS (5)
  1. ACETYLSALICYLIC ACID [Suspect]
     Dosage: 650 MG, BID
  2. ACETYLSALICYLIC ACID [Suspect]
     Dosage: UNK, UNK
  3. CETIRIZINE [Concomitant]
     Indication: ASTHMA
     Dosage: UNK, UNK
  4. FLUTICASONE [Concomitant]
     Indication: ASTHMA
     Dosage: UNK, UNK
  5. SALMETEROL [Concomitant]
     Indication: ASTHMA
     Dosage: UNK,UNK

REACTIONS (5)
  - Analgesic asthma syndrome [Recovered/Resolved]
  - Nasal obstruction [Recovered/Resolved]
  - Nasal polyps [Recovered/Resolved]
  - Nasal congestion [Recovered/Resolved]
  - Rhinorrhoea [Recovered/Resolved]
